FAERS Safety Report 7635024-4 (Version None)
Quarter: 2011Q3

REPORT INFORMATION
  Report Type: 
  Country: None (occurrence: None)
  Receive Date: 20110726
  Receipt Date: 20110714
  Transmission Date: 20111222
  Serious: Yes (Hospitalization)
  Sender: FDA-Public Use
  Company Number: US-JNJFOC-20110707200

PATIENT
  Sex: Male
  Weight: 95.26 kg

DRUGS (6)
  1. REMICADE [Suspect]
     Indication: COLITIS ULCERATIVE
     Route: 042
     Dates: start: 20110628
  2. BENADRYL [Concomitant]
     Indication: PREMEDICATION
     Dates: start: 20110628
  3. ENTOCORT EC [Suspect]
     Indication: PRODUCT USED FOR UNKNOWN INDICATION
  4. PREDNISONE TAB [Concomitant]
     Indication: PREMEDICATION
     Dates: start: 20110628
  5. REMICADE [Suspect]
     Route: 042
     Dates: start: 20090101, end: 20090101
  6. ASACOL [Suspect]
     Indication: HAEMATOCHEZIA

REACTIONS (13)
  - PULMONARY THROMBOSIS [None]
  - URTICARIA [None]
  - ANAEMIA [None]
  - NAUSEA [None]
  - OROPHARYNGEAL PAIN [None]
  - THROMBOSIS [None]
  - WHITE BLOOD CELL COUNT INCREASED [None]
  - PYREXIA [None]
  - DEHYDRATION [None]
  - RASH [None]
  - DRUG INEFFECTIVE [None]
  - HAEMATOCHEZIA [None]
  - FALL [None]
